FAERS Safety Report 16761468 (Version 1)
Quarter: 2019Q3

REPORT INFORMATION
  Report Type: Spontaneous
  Country: DE (occurrence: DE)
  Receive Date: 20190830
  Receipt Date: 20190830
  Transmission Date: 20191005
  Serious: Yes (Other)
  Sender: FDA-Public Use
  Company Number: DE-BIOVITRUM-2019DE2761

PATIENT
  Sex: Male

DRUGS (2)
  1. KINERET [Suspect]
     Active Substance: ANAKINRA
     Indication: COMBINED IMMUNODEFICIENCY
     Route: 065
  2. ENBREL [Concomitant]
     Active Substance: ETANERCEPT

REACTIONS (5)
  - Anaphylactic shock [Unknown]
  - Confusional state [Recovered/Resolved]
  - Somnolence [Recovered/Resolved]
  - Off label use [Unknown]
  - Pyrexia [Recovered/Resolved]
